FAERS Safety Report 20621815 (Version 2)
Quarter: 2022Q2

REPORT INFORMATION
  Report Type: Report from Study
  Country: FR (occurrence: FR)
  Receive Date: 20220322
  Receipt Date: 20220422
  Transmission Date: 20220721
  Serious: Yes (Death)
  Sender: FDA-Public Use
  Company Number: FR-NOVARTISPH-NVSC2022FR063239

PATIENT
  Age: 28 Year
  Sex: Female

DRUGS (1)
  1. ASCIMINIB [Suspect]
     Active Substance: ASCIMINIB
     Indication: Acute lymphocytic leukaemia
     Dosage: UNK
     Route: 065
     Dates: start: 20200513

REACTIONS (1)
  - Acute lymphocytic leukaemia recurrent [Fatal]
